FAERS Safety Report 8809774 (Version 1)
Quarter: 2012Q4

REPORT INFORMATION
  Report Type: 
  Country: US (occurrence: US)
  Receive Date: 20120926
  Receipt Date: 20120926
  Transmission Date: 20130627
  Serious: Yes (Other)
  Sender: FDA-Public Use
  Company Number: CHPA2012US020311

PATIENT
  Age: 73 Year
  Sex: Female

DRUGS (7)
  1. MINERAL OIL\PETROLEUM [Suspect]
     Indication: DRY SKIN
     Dosage: UNK, QD after bath
     Route: 061
     Dates: start: 1958
  2. IBUPROFEN [Suspect]
     Dosage: Unk, Unk
     Route: 048
  3. DYAZIDE [Concomitant]
     Indication: FLUID RETENTION
     Dosage: Unk, Unk
  4. ZYLOPRIM [Concomitant]
     Indication: GOUT
     Dosage: Unk, Unk
  5. CYTOMEL [Concomitant]
     Indication: THYROID DISORDER
     Dosage: Unk, Unk
  6. SYNTHROID [Concomitant]
     Indication: THYROID DISORDER
     Dosage: Unk, Unk
  7. ASPIRIN ^BAYER^ [Concomitant]
     Dosage: Unk, Unk

REACTIONS (7)
  - Hypertension [Not Recovered/Not Resolved]
  - Blood cholesterol increased [Not Recovered/Not Resolved]
  - Heart rate increased [Not Recovered/Not Resolved]
  - Palpitations [Not Recovered/Not Resolved]
  - Hyperhidrosis [Recovered/Resolved]
  - Fatigue [Not Recovered/Not Resolved]
  - Vomiting [Recovered/Resolved]
